FAERS Safety Report 23692896 (Version 2)
Quarter: 2024Q2

REPORT INFORMATION
  Report Type: Spontaneous
  Country: US (occurrence: US)
  Receive Date: 20240401
  Receipt Date: 20240605
  Transmission Date: 20240716
  Serious: No
  Sender: FDA-Public Use
  Company Number: US-SA-SAC20240325000684

PATIENT
  Age: 54 Year
  Sex: Male

DRUGS (33)
  1. DUPIXENT [Suspect]
     Active Substance: DUPILUMAB
     Indication: Dermatitis atopic
     Dosage: 300 MG, QOW
     Route: 058
     Dates: start: 20221119
  2. APAP;CODEINE [Concomitant]
  3. BYSTOLIC [Concomitant]
     Active Substance: NEBIVOLOL HYDROCHLORIDE
  4. BYSTOLIC [Concomitant]
     Active Substance: NEBIVOLOL HYDROCHLORIDE
  5. DIGOXIN [Concomitant]
     Active Substance: DIGOXIN
  6. DIGOXIN [Concomitant]
     Active Substance: DIGOXIN
  7. ESZOPICLONE [Concomitant]
     Active Substance: ESZOPICLONE
  8. ESZOPICLONE [Concomitant]
     Active Substance: ESZOPICLONE
  9. HAVRIX [Concomitant]
     Active Substance: HEPATITIS A VIRUS STRAIN HM175 ANTIGEN (FORMALDEHYDE INACTIVATED)
  10. HAVRIX [Concomitant]
     Active Substance: HEPATITIS A VIRUS STRAIN HM175 ANTIGEN (FORMALDEHYDE INACTIVATED)
  11. LATANOPROST [Concomitant]
     Active Substance: LATANOPROST
  12. LATANOPROST [Concomitant]
     Active Substance: LATANOPROST
  13. LORATADINE D [Concomitant]
     Active Substance: LORATADINE\PSEUDOEPHEDRINE SULFATE
  14. LORATADINE D [Concomitant]
     Active Substance: LORATADINE\PSEUDOEPHEDRINE SULFATE
     Dosage: 10240MG
  15. NOVOLOG [Concomitant]
     Active Substance: INSULIN ASPART
  16. OMEPRAZOLE [Concomitant]
     Active Substance: DONEPEZIL HYDROCHLORIDE\OMEPRAZOLE\OMEPRAZOLE MAGNESIUM
     Indication: Gastrooesophageal reflux disease
  17. OMEPRAZOLE [Concomitant]
     Active Substance: DONEPEZIL HYDROCHLORIDE\OMEPRAZOLE\OMEPRAZOLE MAGNESIUM
     Indication: Oesophagitis
  18. ROSUVASTATIN [Concomitant]
     Active Substance: ROSUVASTATIN
  19. ROSUVASTATIN [Concomitant]
     Active Substance: ROSUVASTATIN
  20. SILDENAFIL [Concomitant]
     Active Substance: SILDENAFIL
  21. SILDENAFIL [Concomitant]
     Active Substance: SILDENAFIL
  22. TRAMADOL HCL [Concomitant]
     Active Substance: TRAMADOL HYDROCHLORIDE
  23. TRULICITY [Concomitant]
     Active Substance: DULAGLUTIDE
     Indication: Type 2 diabetes mellitus
  24. TRULICITY [Concomitant]
     Active Substance: DULAGLUTIDE
  25. TWINRIX [Concomitant]
     Active Substance: HEPATITIS A VIRUS STRAIN HM175 ANTIGEN (FORMALDEHYDE INACTIVATED)\HEPATITIS B VIRUS SUBTYPE ADW2 HBS
  26. TWINRIX [Concomitant]
     Active Substance: HEPATITIS A VIRUS STRAIN HM175 ANTIGEN (FORMALDEHYDE INACTIVATED)\HEPATITIS B VIRUS SUBTYPE ADW2 HBS
  27. WARFARIN [Concomitant]
     Active Substance: WARFARIN
  28. WARFARIN [Concomitant]
     Active Substance: WARFARIN
  29. BETAMETHASONE DIPROPIONATE [Concomitant]
     Active Substance: BETAMETHASONE DIPROPIONATE
  30. BETAMETHASONE VALERATE [Concomitant]
     Active Substance: BETAMETHASONE VALERATE
  31. DEXAMETHASONE\TOBRAMYCIN [Concomitant]
     Active Substance: DEXAMETHASONE\TOBRAMYCIN
  32. FINASTERIDE [Concomitant]
     Active Substance: FINASTERIDE
  33. NOVOLOG [Concomitant]
     Active Substance: INSULIN ASPART
     Indication: Type 2 diabetes mellitus

REACTIONS (6)
  - Sleep disorder [Not Recovered/Not Resolved]
  - Pruritus [Not Recovered/Not Resolved]
  - Rash [Not Recovered/Not Resolved]
  - Condition aggravated [Not Recovered/Not Resolved]
  - Discomfort [Not Recovered/Not Resolved]
  - Drug ineffective [Unknown]
